FAERS Safety Report 17623340 (Version 2)
Quarter: 2020Q4

REPORT INFORMATION
  Report Type: Spontaneous
  Country: US (occurrence: US)
  Receive Date: 20200403
  Receipt Date: 20201029
  Transmission Date: 20210113
  Serious: Yes (Other)
  Sender: FDA-Public Use
  Company Number: US-PFIZER INC-2019347810

PATIENT
  Age: 76 Year
  Sex: Female

DRUGS (4)
  1. LYRICA [Concomitant]
     Active Substance: PREGABALIN
     Dosage: 150 MG, 1 CAPSULE THREE TIMES A DAY
     Route: 048
  2. PREMARIN [Suspect]
     Active Substance: ESTROGENS, CONJUGATED
     Indication: INCONTINENCE
     Dosage: 1 G, THREE TIMES A WEEK
  3. PREMARIN [Suspect]
     Active Substance: ESTROGENS, CONJUGATED
     Indication: CYSTITIS
     Dosage: 0.625 MG, THREE TIMES A WEEK
     Route: 067
  4. LYRICA [Concomitant]
     Active Substance: PREGABALIN
     Dosage: 75 MG, TWO AT BEDTIME

REACTIONS (8)
  - Joint dislocation [Recovering/Resolving]
  - Memory impairment [Unknown]
  - Drug effective for unapproved indication [Unknown]
  - Dementia [Unknown]
  - Intentional product use issue [Unknown]
  - Off label use [Unknown]
  - Confusional state [Unknown]
  - Product use in unapproved indication [Unknown]
